FAERS Safety Report 5530212-5 (Version None)
Quarter: 2007Q4

REPORT INFORMATION
  Report Type: 
  Country: None (occurrence: None)
  Receive Date: 20071130
  Receipt Date: 20071122
  Transmission Date: 20080405
  Serious: Yes (Life-Threatening, Hospitalization)
  Sender: FDA-Public Use
  Company Number: DE-WYE-H01389407

PATIENT
  Sex: Female

DRUGS (1)
  1. CORDAREX [Suspect]
     Indication: ARRHYTHMIA
     Dosage: UNSPECIFIED

REACTIONS (2)
  - BRAIN DAMAGE [None]
  - CARDIAC ARREST [None]
